FAERS Safety Report 7770200-1 (Version None)
Quarter: 2011Q3

REPORT INFORMATION
  Report Type: 
  Country: None (occurrence: None)
  Receive Date: 20110922
  Receipt Date: 20100914
  Transmission Date: 20111222
  Serious: No
  Sender: FDA-Public Use
  Company Number: US-ASTRAZENECA-2010SE43172

PATIENT
  Age: 49 Year
  Sex: Female
  Weight: 98.9 kg

DRUGS (2)
  1. SEROQUEL [Suspect]
     Route: 048
     Dates: start: 20100101
  2. SEROQUEL [Suspect]
     Indication: BIPOLAR DISORDER
     Dosage: 200-400 MG AT NIGHT
     Route: 048
     Dates: start: 20050101, end: 20100101

REACTIONS (3)
  - ANXIETY [None]
  - WEIGHT DECREASED [None]
  - DRUG DOSE OMISSION [None]
